FAERS Safety Report 7674203-7 (Version None)
Quarter: 2011Q3

REPORT INFORMATION
  Report Type: 
  Country: None (occurrence: None)
  Receive Date: 20110711
  Receipt Date: 20110411
  Transmission Date: 20111222
  Serious: Yes (Other)
  Sender: FDA-Public Use
  Company Number: IPC201104-000635

PATIENT

DRUGS (6)
  1. METOCLOPRAMIDE [Suspect]
     Indication: NAUSEA
     Dosage: ORAL ; SYRUP, ORAL
     Route: 048
     Dates: start: 19930101, end: 20101201
  2. METOCLOPRAMIDE [Suspect]
     Indication: IMPAIRED GASTRIC EMPTYING
     Dosage: ORAL ; SYRUP, ORAL
     Route: 048
     Dates: start: 19930101, end: 20101201
  3. METOCLOPRAMIDE [Suspect]
     Indication: VOMITING
     Dosage: ORAL ; SYRUP, ORAL
     Route: 048
     Dates: start: 19930101, end: 20101201
  4. REGLAN [Suspect]
     Indication: DYSPEPSIA
     Dosage: ORAL
     Route: 048
     Dates: start: 19930101, end: 20101201
  5. REGLAN [Suspect]
     Indication: ABDOMINAL DISTENSION
     Dosage: ORAL
     Route: 048
     Dates: start: 19930101, end: 20101201
  6. REGLAN [Suspect]
     Indication: IMPAIRED GASTRIC EMPTYING
     Dosage: ORAL
     Route: 048
     Dates: start: 19930101, end: 20101201

REACTIONS (7)
  - TREMOR [None]
  - DYSTONIA [None]
  - EXTRAPYRAMIDAL DISORDER [None]
  - DYSKINESIA [None]
  - AKATHISIA [None]
  - MOVEMENT DISORDER [None]
  - TARDIVE DYSKINESIA [None]
